FAERS Safety Report 21129927 (Version 2)
Quarter: 2022Q3

REPORT INFORMATION
  Report Type: Spontaneous
  Country: PT (occurrence: PT)
  Receive Date: 20220726
  Receipt Date: 20220805
  Transmission Date: 20221027
  Serious: Yes (Hospitalization, Other)
  Sender: FDA-Public Use
  Company Number: PT-CELLTRION INC.-2022PT011567

PATIENT

DRUGS (7)
  1. RITUXIMAB [Suspect]
     Active Substance: RITUXIMAB
     Indication: Arthritis
     Route: 065
     Dates: start: 202011
  2. RITUXIMAB [Suspect]
     Active Substance: RITUXIMAB
     Indication: Systemic lupus erythematosus
  3. METHOTREXATE [Suspect]
     Active Substance: METHOTREXATE
     Indication: Systemic lupus erythematosus
     Dosage: 10 MILLIGRAM ONCE A WEEK
     Route: 065
     Dates: start: 2020
  4. PREDNISOLONE [Suspect]
     Active Substance: PREDNISOLONE
     Indication: Systemic lupus erythematosus
     Dosage: 15 MILLIGRAM, DAILY
     Route: 065
     Dates: start: 2020
  5. HYDROXYCHLOROQUINE [Concomitant]
     Active Substance: HYDROXYCHLOROQUINE
     Indication: Systemic lupus erythematosus
     Dosage: 400 MG AND 200 MG ON ALTERNATE DAYS
  6. IBUPROFEN [Concomitant]
     Active Substance: IBUPROFEN
     Dosage: OCCASIONAL INTAKE OF IBUPROFEN 600 MG
  7. FOLIC ACID [Concomitant]
     Active Substance: FOLIC ACID
     Indication: Systemic lupus erythematosus
     Dosage: 5 MG TWO TABLETS PER WEEK

REACTIONS (3)
  - Respiratory failure [Recovered/Resolved]
  - Pneumonia bacterial [Recovered/Resolved]
  - Off label use [Unknown]
